FAERS Safety Report 4774905-6 (Version None)
Quarter: 2005Q3

REPORT INFORMATION
  Report Type: 
  Country: None (occurrence: None)
  Receive Date: 20050921
  Receipt Date: 20050909
  Transmission Date: 20060218
  Serious: Yes (Other)
  Sender: FDA-Public Use
  Company Number: MY-BRISTOL-MYERS SQUIBB COMPANY-13105614

PATIENT
  Age: 53 Year
  Sex: Male

DRUGS (1)
  1. MAXIPIME [Suspect]
     Route: 042

REACTIONS (1)
  - JAUNDICE CHOLESTATIC [None]
